FAERS Safety Report 18993798 (Version 3)
Quarter: 2021Q1

REPORT INFORMATION
  Report Type: Spontaneous
  Country: AU (occurrence: AU)
  Receive Date: 20210311
  Receipt Date: 20210324
  Transmission Date: 20210420
  Serious: Yes (Other)
  Sender: FDA-Public Use
  Company Number: AU-JNJFOC-20210312081

PATIENT
  Age: 61 Year
  Sex: Male

DRUGS (19)
  1. HYDROCORTISONE. [Suspect]
     Active Substance: HYDROCORTISONE
     Indication: DYSPNOEA
  2. LORATADINE. [Suspect]
     Active Substance: LORATADINE
     Indication: DYSPNOEA
  3. LORATADINE. [Suspect]
     Active Substance: LORATADINE
     Indication: CHEST DISCOMFORT
     Route: 065
  4. PARACETAMOL [Suspect]
     Active Substance: ACETAMINOPHEN
     Indication: FLUSHING
  5. HYDROCORTISONE. [Suspect]
     Active Substance: HYDROCORTISONE
     Indication: CHEST DISCOMFORT
     Route: 065
  6. RANITIDINE. [Suspect]
     Active Substance: RANITIDINE
     Indication: TACHYCARDIA
  7. RANITIDINE. [Suspect]
     Active Substance: RANITIDINE
     Indication: PYREXIA
     Route: 065
  8. SALBUTAMOL [Suspect]
     Active Substance: ALBUTEROL
     Indication: WHEEZING
     Dosage: ADMINISTERED AT NEBULIZED RESPIRATORY
     Route: 065
  9. CARBOPLATIN. [Suspect]
     Active Substance: CARBOPLATIN
     Indication: SQUAMOUS CELL CARCINOMA OF LUNG
     Dosage: ADMINISTERED AT EVERY 3 WEEKS, 5 CYCLES
     Route: 065
  10. HYDROCORTISONE. [Suspect]
     Active Substance: HYDROCORTISONE
     Indication: FLUSHING
  11. LORATADINE. [Suspect]
     Active Substance: LORATADINE
     Indication: FLUSHING
  12. RANITIDINE. [Suspect]
     Active Substance: RANITIDINE
     Indication: HYPERTENSION
  13. PARACETAMOL [Suspect]
     Active Substance: ACETAMINOPHEN
     Indication: CHEST DISCOMFORT
     Route: 065
  14. PARACETAMOL [Suspect]
     Active Substance: ACETAMINOPHEN
     Indication: DYSPNOEA
  15. PARACETAMOL [Suspect]
     Active Substance: ACETAMINOPHEN
     Indication: WHEEZING
  16. HYDROCORTISONE. [Suspect]
     Active Substance: HYDROCORTISONE
     Indication: WHEEZING
  17. LORATADINE. [Suspect]
     Active Substance: LORATADINE
     Indication: WHEEZING
  18. PACLITAXEL. [Suspect]
     Active Substance: PACLITAXEL
     Indication: SQUAMOUS CELL CARCINOMA OF LUNG
     Dosage: ADMINISTERED AT EVERY 3 WEEKS, 5 CYCLES
     Route: 065
  19. RANITIDINE. [Suspect]
     Active Substance: RANITIDINE
     Indication: CHILLS

REACTIONS (4)
  - Therapeutic product effect incomplete [Unknown]
  - Lethargy [Unknown]
  - Drug ineffective [Unknown]
  - Weight decreased [Unknown]
